FAERS Safety Report 16222533 (Version 1)
Quarter: 2019Q2

REPORT INFORMATION
  Report Type: Spontaneous
  Country: FR (occurrence: FR)
  Receive Date: 20190422
  Receipt Date: 20190422
  Transmission Date: 20190711
  Serious: Yes (Hospitalization, Other)
  Sender: FDA-Public Use
  Company Number: FR-MICRO LABS LIMITED-ML2019-00938

PATIENT
  Age: 60 Year
  Sex: Female

DRUGS (7)
  1. NITROFURANTOIN. [Concomitant]
     Active Substance: NITROFURANTOIN
  2. DALFAMPRIDINE. [Suspect]
     Active Substance: DALFAMPRIDINE
     Dosage: BID
     Dates: start: 2013
  3. BIOTIN [Suspect]
     Active Substance: BIOTIN
     Dosage: 100 MG, THREE TIMES PER DAY
     Route: 048
     Dates: start: 2016
  4. BACLOFEN. [Suspect]
     Active Substance: BACLOFEN
     Dosage: BACLOFEN 70 MG PER DAY FOR MANY YEARS
  5. INTERFERON BETA-1A [Concomitant]
     Active Substance: INTERFERON BETA-1A
     Indication: RELAPSING-REMITTING MULTIPLE SCLEROSIS
  6. CYCLOPHOSPHAMIDE. [Concomitant]
     Active Substance: CYCLOPHOSPHAMIDE
     Indication: SECONDARY PROGRESSIVE MULTIPLE SCLEROSIS
     Dosage: MONTHLY
     Route: 042
     Dates: start: 2008
  7. OXYBUTYNIN. [Concomitant]
     Active Substance: OXYBUTYNIN CHLORIDE

REACTIONS (2)
  - Status epilepticus [Unknown]
  - Off label use [Unknown]
